FAERS Safety Report 9336674 (Version 2)
Quarter: 2013Q3

REPORT INFORMATION
  Report Type: Report from Study
  Country: CA (occurrence: CA)
  Receive Date: 20130607
  Receipt Date: 20130729
  Transmission Date: 20140515
  Serious: Yes (Other)
  Sender: FDA-Public Use
  Company Number: CA-ROCHE-1233249

PATIENT
  Sex: Female

DRUGS (1)
  1. LUCENTIS [Suspect]
     Indication: AGE-RELATED MACULAR DEGENERATION
     Dosage: (10MG/ML VIAL)
     Route: 050

REACTIONS (4)
  - Eye haemorrhage [Unknown]
  - Ocular hyperaemia [Unknown]
  - Injury corneal [Recovered/Resolved]
  - Vision blurred [Unknown]
